FAERS Safety Report 5475205-1 (Version None)
Quarter: 2007Q4

REPORT INFORMATION
  Report Type: 
  Country: None (occurrence: None)
  Receive Date: 20071002
  Receipt Date: 20070921
  Transmission Date: 20080405
  Serious: Yes (Hospitalization, Other)
  Sender: FDA-Public Use
  Company Number: US-ELI_LILLY_AND_COMPANY-US200709004907

PATIENT
  Age: 75 Year
  Sex: Female

DRUGS (2)
  1. FORTEO [Suspect]
     Indication: OSTEOPOROSIS
     Dosage: UNK, EACH EVENING
     Dates: start: 20061101, end: 20061225
  2. FORTEO [Suspect]
     Dosage: UNK, EACH EVENING
     Dates: start: 20061227

REACTIONS (6)
  - CONTUSION [None]
  - EXCORIATION [None]
  - FALL [None]
  - HAEMORRHAGE [None]
  - MYOCARDIAL INFARCTION [None]
  - SKIN LACERATION [None]
